FAERS Safety Report 10045622 (Version 2)
Quarter: 2014Q2

REPORT INFORMATION
  Report Type: Spontaneous
  Country: RS (occurrence: RS)
  Receive Date: 20140328
  Receipt Date: 20140408
  Transmission Date: 20141212
  Serious: Yes (Other)
  Sender: FDA-Public Use
  Company Number: RS-009507513-1403SRB012697

PATIENT
  Age: 3 Year
  Sex: Male
  Weight: 18 kg

DRUGS (2)
  1. SINGULAIR [Suspect]
     Indication: ASTHMA
     Dosage: 4 MG, QD
     Route: 048
     Dates: start: 20131118, end: 20140305
  2. PULMICORT [Concomitant]
     Indication: ASTHMA
     Dosage: CONCENTRATION 0.25 MG/ML, QD
     Route: 055
     Dates: start: 20131110

REACTIONS (3)
  - Crying [Recovered/Resolved]
  - Abnormal behaviour [Recovered/Resolved]
  - Aggression [Recovered/Resolved]
